FAERS Safety Report 14000249 (Version 1)
Quarter: 2017Q3

REPORT INFORMATION
  Report Type: Spontaneous
  Country: US (occurrence: US)
  Receive Date: 20170922
  Receipt Date: 20170922
  Transmission Date: 20171128
  Serious: Yes (Disabling)
  Sender: FDA-Public Use
  Company Number: None

PATIENT
  Age: 42 Year
  Sex: Female
  Weight: 78.75 kg

DRUGS (1)
  1. ELIQUIS [Suspect]
     Active Substance: APIXABAN
     Indication: DEEP VEIN THROMBOSIS
     Dosage: ?          QUANTITY:1 TABLET(S);?
     Route: 048
     Dates: start: 20170814, end: 20170920

REACTIONS (6)
  - Headache [None]
  - Dyspnoea [None]
  - Hepatic pain [None]
  - Palpitations [None]
  - Menorrhagia [None]
  - Paraesthesia [None]

NARRATIVE: CASE EVENT DATE: 20170915
